FAERS Safety Report 15814313 (Version 4)
Quarter: 2019Q1

REPORT INFORMATION
  Report Type: Spontaneous
  Country: JP (occurrence: JP)
  Receive Date: 20190111
  Receipt Date: 20190222
  Transmission Date: 20190417
  Serious: Yes (Life-Threatening, Hospitalization)
  Sender: FDA-Public Use
  Company Number: JP-PFIZER INC-2019014058

PATIENT
  Age: 74 Year
  Sex: Female
  Weight: 47.2 kg

DRUGS (7)
  1. ROSUVASTATIN. [Concomitant]
     Active Substance: ROSUVASTATIN
  2. CELECOX [Suspect]
     Active Substance: CELECOXIB
     Indication: SPINAL OSTEOARTHRITIS
     Dosage: 100 MG, 2X/DAY
     Route: 048
     Dates: start: 20181215, end: 20181227
  3. REBAMIPIDE TOWA [Suspect]
     Active Substance: REBAMIPIDE
     Indication: SPINAL OSTEOARTHRITIS
     Dosage: 100 MG, 2X/DAY
     Route: 048
     Dates: start: 20181215, end: 20181227
  4. AMLODIPINE [Concomitant]
     Active Substance: AMLODIPINE BESYLATE
     Dosage: UNK
  5. MECOBALAMIN TOWA [Suspect]
     Active Substance: METHYLCOBALAMIN
     Indication: SPINAL OSTEOARTHRITIS
     Dosage: 1 DF, 3X/DAY
     Route: 048
     Dates: start: 20181215, end: 20181227
  6. TAKECAB [Concomitant]
     Active Substance: VONOPRAZAN FUMURATE
     Dosage: 10 MG, UNK
  7. LYRICA [Suspect]
     Active Substance: PREGABALIN
     Indication: SPINAL OSTEOARTHRITIS
     Dosage: 100 MG, 1X/DAY
     Route: 048
     Dates: start: 20181215, end: 20181227

REACTIONS (5)
  - Product use in unapproved indication [Unknown]
  - Erythema multiforme [Recovering/Resolving]
  - Erythema [None]
  - Rash [None]
  - Pruritus [None]

NARRATIVE: CASE EVENT DATE: 20181215
